FAERS Safety Report 6426304-9 (Version None)
Quarter: 2009Q4

REPORT INFORMATION
  Report Type: 
  Country: None (occurrence: None)
  Receive Date: 20091104
  Receipt Date: 20091027
  Transmission Date: 20100525
  Serious: Yes (Other)
  Sender: FDA-Public Use
  Company Number: PL-ROCHE-665538

PATIENT
  Sex: Female

DRUGS (5)
  1. BONIVA [Suspect]
     Indication: OSTEOPOROSIS
     Route: 042
     Dates: start: 20090202
  2. SALAZOPYRIN EN [Concomitant]
     Indication: RHEUMATOID ARTHRITIS
     Route: 048
     Dates: start: 20081104
  3. FOLIC ACID [Concomitant]
     Dosage: INDICATION REPORTED AS : AS A ADDITION TO SALAZOPYRIN EN.
     Route: 048
     Dates: start: 20081104
  4. ALFADIOL [Concomitant]
     Indication: OSTEOPOROSIS
     Route: 048
     Dates: start: 20090202
  5. OSTEOGENON [Concomitant]
     Indication: OSTEOPOROSIS
     Route: 048
     Dates: start: 20090202

REACTIONS (3)
  - BLOOD PRESSURE INCREASED [None]
  - MALAISE [None]
  - VERTIGO [None]
